FAERS Safety Report 9822861 (Version 1)
Quarter: 2014Q1

REPORT INFORMATION
  Report Type: Spontaneous
  Country: FR (occurrence: FR)
  Receive Date: 20140116
  Receipt Date: 20140116
  Transmission Date: 20141002
  Serious: Yes (Hospitalization, Other)
  Sender: FDA-Public Use
  Company Number: FR-ELI_LILLY_AND_COMPANY-FR201401003109

PATIENT
  Age: 19 Year
  Sex: Male

DRUGS (2)
  1. CIALIS [Suspect]
     Indication: PRODUCT USED FOR UNKNOWN INDICATION
     Dosage: 5 MG, UNKNOWN
     Route: 048
  2. CIALIS [Suspect]
     Dosage: 20 MG, UNKNOWN
     Route: 048

REACTIONS (2)
  - Electrocardiogram repolarisation abnormality [Unknown]
  - Chest pain [Unknown]
